FAERS Safety Report 23507445 (Version 5)
Quarter: 2024Q2

REPORT INFORMATION
  Report Type: Report from Study
  Country: US (occurrence: US)
  Receive Date: 20240209
  Receipt Date: 20240420
  Transmission Date: 20240716
  Serious: Yes (Hospitalization, Other)
  Sender: FDA-Public Use
  Company Number: US-SA-SAC20240202000262

PATIENT
  Age: 49 Year
  Sex: Female

DRUGS (1)
  1. AGALSIDASE BETA [Suspect]
     Active Substance: AGALSIDASE BETA
     Indication: Fabry^s disease
     Dosage: 95 (UNITS NOT PROVIDED), QOW
     Route: 042
     Dates: start: 20231106

REACTIONS (11)
  - Migraine [Unknown]
  - Facial paralysis [Unknown]
  - Hypertrophic cardiomyopathy [Not Recovered/Not Resolved]
  - Bradycardia [Not Recovered/Not Resolved]
  - Ischaemic stroke [Unknown]
  - Fluid retention [Unknown]
  - Weight increased [Unknown]
  - Hypoaesthesia [Unknown]
  - Dizziness [Unknown]
  - Hypertension [Unknown]
  - Headache [Unknown]

NARRATIVE: CASE EVENT DATE: 20240101
